FAERS Safety Report 10036182 (Version 1)
Quarter: 2014Q1

REPORT INFORMATION
  Report Type: Spontaneous
  Country: DE (occurrence: DE)
  Receive Date: 20140325
  Receipt Date: 20140325
  Transmission Date: 20141002
  Serious: Yes (Hospitalization)
  Sender: FDA-Public Use
  Company Number: DE-DSJP-DSE-2014-102047

PATIENT
  Sex: 0

DRUGS (3)
  1. VOTUM 20 MG [Suspect]
     Indication: HYPERTENSION
     Dosage: 20 MG, QD
     Route: 048
     Dates: start: 2007
  2. ESTRAMON [Suspect]
     Indication: HORMONE REPLACEMENT THERAPY
     Dosage: 50 ?G, QD
     Route: 062
     Dates: start: 2007
  3. PROGESTERONE [Suspect]
     Indication: HORMONE REPLACEMENT THERAPY
     Dosage: 100 MG, QD
     Dates: start: 2007

REACTIONS (2)
  - Electrocardiogram QT prolonged [Unknown]
  - Ventricular extrasystoles [Unknown]
